FAERS Safety Report 25283823 (Version 2)
Quarter: 2025Q2

REPORT INFORMATION
  Report Type: Spontaneous
  Country: US (occurrence: US)
  Receive Date: 20250508
  Receipt Date: 20250618
  Transmission Date: 20250716
  Serious: No
  Sender: Karo Pharma
  Company Number: US-Karo Pharma-2176402

PATIENT
  Age: 15 Year
  Sex: Female
  Weight: 68 kg

DRUGS (6)
  1. TERBINAFINE [Suspect]
     Active Substance: TERBINAFINE
     Indication: Psoriasis
  2. RIFAMPIN [Suspect]
     Active Substance: RIFAMPIN
  3. FLUCONAZOLE [Suspect]
     Active Substance: FLUCONAZOLE
  4. CLOBETASOL [Suspect]
     Active Substance: CLOBETASOL
  5. CLINDAMYCIN [Suspect]
     Active Substance: CLINDAMYCIN
  6. KETOCONAZOLE [Suspect]
     Active Substance: KETOCONAZOLE

REACTIONS (4)
  - Tinea capitis [Unknown]
  - Product use in unapproved indication [Unknown]
  - Drug ineffective [Unknown]
  - Bacterial test positive [Unknown]
